FAERS Safety Report 7764771-9 (Version None)
Quarter: 2011Q3

REPORT INFORMATION
  Report Type: 
  Country: None (occurrence: None)
  Receive Date: 20110921
  Receipt Date: 20110921
  Transmission Date: 20111222
  Serious: Yes (Other)
  Sender: FDA-Public Use
  Company Number: None

PATIENT
  Age: 41 Year
  Sex: Female
  Weight: 70.306 kg

DRUGS (1)
  1. DICLOFENAC SODIUM [Suspect]
     Indication: BURSITIS
     Dosage: 1 TABLET
     Route: 048
     Dates: start: 20110912, end: 20110919

REACTIONS (2)
  - ABDOMINAL PAIN UPPER [None]
  - MIDDLE INSOMNIA [None]
